FAERS Safety Report 12977582 (Version 1)
Quarter: 2016Q4

REPORT INFORMATION
  Report Type: Spontaneous
  Country: TW (occurrence: TW)
  Receive Date: 20161128
  Receipt Date: 20161128
  Transmission Date: 20170207
  Serious: Yes (Other)
  Sender: FDA-Public Use
  Company Number: TW-B.I. PHARMACEUTICALS,INC./RIDGEFIELD-2016-BI-081082

PATIENT
  Age: 59 Year
  Sex: Male

DRUGS (3)
  1. INSULIN [Concomitant]
     Active Substance: INSULIN NOS
     Indication: DIABETES MELLITUS MANAGEMENT
     Route: 058
  2. PERSANTIN [Suspect]
     Active Substance: DIPYRIDAMOLE
     Indication: BRAIN STEM INFARCTION
     Route: 065
  3. ASPIRIN. [Concomitant]
     Active Substance: ASPIRIN
     Indication: BRAIN STEM INFARCTION
     Route: 065

REACTIONS (1)
  - Haemorrhagic transformation stroke [Recovered/Resolved with Sequelae]
